FAERS Safety Report 23181768 (Version 1)
Quarter: 2023Q4

REPORT INFORMATION
  Report Type: Spontaneous
  Country: DE (occurrence: DE)
  Receive Date: 20231114
  Receipt Date: 20231114
  Transmission Date: 20240109
  Serious: Yes (Other)
  Sender: FDA-Public Use
  Company Number: DE-BRISTOL-MYERS SQUIBB COMPANY-2023-161122

PATIENT
  Age: 75 Year
  Sex: Male

DRUGS (3)
  1. NIVOLUMAB [Suspect]
     Active Substance: NIVOLUMAB
     Indication: Metastatic malignant melanoma
     Dosage: 4 DOSES
     Route: 042
     Dates: start: 201802, end: 201805
  2. NIVOLUMAB [Suspect]
     Active Substance: NIVOLUMAB
     Dosage: Q4W (EVERY 4 WEEK)
     Route: 042
     Dates: start: 202310
  3. IPILIMUMAB [Suspect]
     Active Substance: IPILIMUMAB
     Indication: Metastatic malignant melanoma
     Dosage: 4 DOSES
     Route: 042
     Dates: start: 201802, end: 201805

REACTIONS (3)
  - Panniculitis [Unknown]
  - Malignant neoplasm progression [Unknown]
  - Sarcoid-like reaction [Unknown]
